FAERS Safety Report 20289761 (Version 1)
Quarter: 2022Q1

REPORT INFORMATION
  Report Type: Spontaneous
  Country: US (occurrence: None)
  Receive Date: 20220103
  Receipt Date: 20220103
  Transmission Date: 20220424
  Serious: No
  Sender: FDA-Public Use
  Company Number: None

PATIENT
  Age: 39 Year
  Sex: Male
  Weight: 125 kg

DRUGS (2)
  1. CASIRIVIMAB [Suspect]
     Active Substance: CASIRIVIMAB
     Indication: COVID-19
     Dosage: FREQUENCY : ONCE;?
     Route: 041
     Dates: start: 20211206, end: 20211206
  2. IMDEVIMAB [Suspect]
     Active Substance: IMDEVIMAB
     Dosage: FREQUENCY : ONCE;?
     Route: 041
     Dates: start: 20211206

REACTIONS (1)
  - Pyrexia [None]

NARRATIVE: CASE EVENT DATE: 20211204
